FAERS Safety Report 7981180 (Version 2)
Quarter: 2012Q4

REPORT INFORMATION
  Report Type: 
  Country: CA (occurrence: CA)
  Receive Date: 20110608
  Receipt Date: 20121107
  Transmission Date: 20130627
  Serious: Yes (Hospitalization, Other)
  Sender: FDA-Public Use
  Company Number: PHMT2006CA00571

PATIENT
  Sex: Female

DRUGS (9)
  1. SANDOSTATIN LAR [Suspect]
     Indication: ACROMEGALY
     Dosage: 30 mg
     Dates: start: 20050727
  2. ALTACE [Concomitant]
     Dosage: 5 mg, UNK
  3. AMANTADINE [Concomitant]
  4. ASAPHEN [Concomitant]
  5. ATENOLOL [Concomitant]
  6. GLYCERIN SUPPOSITORIES [Concomitant]
  7. HYDROCHLOROTHIAZIDE [Concomitant]
  8. LACTULOSE [Concomitant]
  9. LOXAPINE [Concomitant]

REACTIONS (8)
  - Gastrointestinal haemorrhage [Unknown]
  - Vomiting [Unknown]
  - Sepsis [Unknown]
  - Malaise [Unknown]
  - Loss of consciousness [Unknown]
  - Blood pressure increased [Unknown]
  - Bradycardia [Unknown]
  - Blood glucose decreased [Unknown]
